FAERS Safety Report 5571199-9 (Version None)
Quarter: 2007Q4

REPORT INFORMATION
  Report Type: 
  Country: None (occurrence: None)
  Receive Date: 20071221
  Receipt Date: 20070125
  Transmission Date: 20080405
  Serious: No
  Sender: FDA-Public Use
  Company Number: A0637056A

PATIENT
  Age: 72 Year
  Sex: Female

DRUGS (10)
  1. FLONASE [Suspect]
     Indication: DRUG USE FOR UNKNOWN INDICATION
     Dosage: 2SPR PER DAY
     Route: 045
     Dates: end: 20070120
  2. COUMADIN [Concomitant]
  3. TOPROL-XL [Concomitant]
  4. ALTACE [Concomitant]
  5. ALTACET [Concomitant]
  6. SYNTHROID [Concomitant]
  7. CENTRUM [Concomitant]
  8. CALCIUM [Concomitant]
  9. DEPAKOTE [Concomitant]
  10. CELEXA [Concomitant]

REACTIONS (1)
  - EPISTAXIS [None]
